FAERS Safety Report 7867232-1 (Version None)
Quarter: 2011Q4

REPORT INFORMATION
  Report Type: 
  Country: None (occurrence: None)
  Receive Date: 20111028
  Receipt Date: 20111020
  Transmission Date: 20120403
  Serious: Yes (Other)
  Sender: FDA-Public Use
  Company Number: IT-GLAXOSMITHKLINE-B0758648A

PATIENT
  Sex: Male

DRUGS (2)
  1. ARIXTRA [Suspect]
     Indication: THROMBOSIS PROPHYLAXIS
     Dosage: 2.5MG PER DAY
     Route: 065
     Dates: start: 20111012, end: 20111014
  2. ACETAMINOPHEN [Concomitant]

REACTIONS (3)
  - TACHYCARDIA [None]
  - HYPOTENSION [None]
  - HYPERHIDROSIS [None]
